FAERS Safety Report 5692351-8 (Version None)
Quarter: 2008Q1

REPORT INFORMATION
  Report Type: 
  Country: None (occurrence: None)
  Receive Date: 20080331
  Receipt Date: 20080324
  Transmission Date: 20080703
  Serious: Yes (Hospitalization)
  Sender: FDA-Public Use
  Company Number: 269-C5013-07101759

PATIENT
  Age: 78 Year
  Sex: Female
  Weight: 47 kg

DRUGS (7)
  1. CC-5013/PLACEBO  (LENALIDOMIDE) [Suspect]
     Indication: MULTIPLE MYELOMA
     Dosage: 10 MG, DAYS 1-21, ORAL; 10 MG, DAYS 1-21, ORAL; 10 MG, DAYS 1-21, ORAL
     Route: 048
     Dates: start: 20070730, end: 20070901
  2. CC-5013/PLACEBO  (LENALIDOMIDE) [Suspect]
     Indication: MULTIPLE MYELOMA
     Dosage: 10 MG, DAYS 1-21, ORAL; 10 MG, DAYS 1-21, ORAL; 10 MG, DAYS 1-21, ORAL
     Route: 048
     Dates: start: 20071001, end: 20071021
  3. CC-5013/PLACEBO  (LENALIDOMIDE) [Suspect]
     Indication: MULTIPLE MYELOMA
     Dosage: 10 MG, DAYS 1-21, ORAL; 10 MG, DAYS 1-21, ORAL; 10 MG, DAYS 1-21, ORAL
     Route: 048
     Dates: start: 20071010, end: 20071102
  4. MELPHALAN (MELPHALAN) [Suspect]
     Indication: MULTIPLE MYELOMA
     Dosage: 0.18MG/KG, DAYS 1-4, ORAL
     Route: 048
     Dates: start: 20071001, end: 20071004
  5. PREDNISONE TAB [Suspect]
     Indication: MULTIPLE MYELOMA
     Dosage: 2MG/KG, DAYS 1-4, ORAL
     Route: 048
     Dates: start: 20071001, end: 20071004
  6. CIPROFLOXACIN [Concomitant]
  7. ACETYLSALICYLIC ACID SRT [Concomitant]

REACTIONS (7)
  - BLOOD BILIRUBIN INCREASED [None]
  - DERMATITIS EXFOLIATIVE [None]
  - FACE OEDEMA [None]
  - MONOCYTE PERCENTAGE INCREASED [None]
  - PRURITUS [None]
  - RED BLOOD CELL SEDIMENTATION RATE INCREASED [None]
  - TOXIC SKIN ERUPTION [None]
